FAERS Safety Report 9695980 (Version 1)
Quarter: 2013Q4

REPORT INFORMATION
  Report Type: Spontaneous
  Country: TN (occurrence: TN)
  Receive Date: 20131119
  Receipt Date: 20131119
  Transmission Date: 20140711
  Serious: Yes (Other)
  Sender: FDA-Public Use
  Company Number: TN-BRISTOL-MYERS SQUIBB COMPANY-19830280

PATIENT
  Age: 81 Year
  Sex: Female

DRUGS (4)
  1. GLUCOPHAGE [Suspect]
  2. PURINOL [Suspect]
  3. CRESTOR [Suspect]
  4. AMAREL [Suspect]

REACTIONS (1)
  - Dermatitis bullous [Unknown]
